FAERS Safety Report 18143159 (Version 4)
Quarter: 2024Q2

REPORT INFORMATION
  Report Type: Report from Study
  Country: US (occurrence: US)
  Receive Date: 20200812
  Receipt Date: 20240425
  Transmission Date: 20240716
  Serious: Yes (Other)
  Sender: FDA-Public Use
  Company Number: US-JAZZ-2014-US-016775

PATIENT
  Age: 48 Year
  Sex: Female

DRUGS (5)
  1. XYREM [Suspect]
     Active Substance: SODIUM OXYBATE
     Indication: Narcolepsy
     Dosage: 3.5 GRAM, BID
     Route: 048
     Dates: start: 201204, end: 2012
  2. XYREM [Suspect]
     Active Substance: SODIUM OXYBATE
     Indication: Cataplexy
     Dosage: 4.5 GRAM, BID
     Route: 048
     Dates: start: 2012
  3. XYREM [Suspect]
     Active Substance: SODIUM OXYBATE
     Indication: Somnolence
     Dosage: 3.75 G, BID AND OCASSIONALLY TAKES 4.5 G BID
     Route: 048
     Dates: start: 20141030
  4. XYREM [Suspect]
     Active Substance: SODIUM OXYBATE
     Dosage: UNK
  5. LYRICA [Suspect]
     Active Substance: PREGABALIN
     Indication: Product used for unknown indication

REACTIONS (4)
  - Obesity [Recovering/Resolving]
  - Hypertension [Recovered/Resolved]
  - Product administration interrupted [Unknown]
  - Contraindicated product administered [Unknown]

NARRATIVE: CASE EVENT DATE: 20221225
